FAERS Safety Report 9476168 (Version 1)
Quarter: 2013Q3

REPORT INFORMATION
  Report Type: Spontaneous
  Country: US (occurrence: None)
  Receive Date: 20130823
  Receipt Date: 20130823
  Transmission Date: 20140515
  Serious: No
  Sender: FDA-Public Use
  Company Number: None

PATIENT
  Age: 77 Year
  Sex: Male
  Weight: 87 kg

DRUGS (1)
  1. CERTOLIZUMAB [Suspect]
     Dates: start: 20130521, end: 20130611

REACTIONS (3)
  - Myalgia [None]
  - Arthralgia [None]
  - Asthenia [None]
